FAERS Safety Report 9113083 (Version 1)
Quarter: 2013Q1

REPORT INFORMATION
  Report Type: Spontaneous
  Country: JP (occurrence: JP)
  Receive Date: 20130211
  Receipt Date: 20130322
  Transmission Date: 20140127
  Serious: Yes (Hospitalization)
  Sender: FDA-Public Use
  Company Number: JP-JHP PHARMACEUTICALS, LLC-JHP201300058

PATIENT
  Age: 53 Year
  Sex: Male
  Weight: 62 kg

DRUGS (5)
  1. DANTRIUM [Suspect]
     Indication: NEUROLEPTIC MALIGNANT SYNDROME
     Dosage: 30 MG, QD
     Route: 041
     Dates: start: 20110618, end: 20110618
  2. MEYLON [Suspect]
     Indication: RHABDOMYOLYSIS
     Dosage: 250 ML, QD
     Route: 041
     Dates: start: 20110617, end: 20110618
  3. OLANZAPINE [Concomitant]
     Dosage: UNK
     Route: 048
     Dates: end: 20110617
  4. ABILIFY [Concomitant]
     Dosage: UNK
     Route: 048
     Dates: end: 20110617
  5. TIMIPERONE [Concomitant]
     Dosage: UNK
     Route: 048
     Dates: end: 20110617

REACTIONS (1)
  - Respiratory failure [Recovered/Resolved]
